FAERS Safety Report 20415852 (Version 1)
Quarter: 2022Q1

REPORT INFORMATION
  Report Type: Spontaneous
  Country: FR (occurrence: FR)
  Receive Date: 20220202
  Receipt Date: 20220202
  Transmission Date: 20220423
  Serious: Yes (Death)
  Sender: FDA-Public Use
  Company Number: FR-STRIDES ARCOLAB LIMITED-2022SP000814

PATIENT

DRUGS (3)
  1. DEXAMETHASONE [Suspect]
     Active Substance: DEXAMETHASONE
     Indication: Cardiac amyloidosis
     Dosage: 120 MILLIGRAM, CYCLICAL (ON DAYS 1, 2, 8, 9, 15, 16, 22 AND 23)
     Route: 048
  2. CYCLOPHOSPHAMIDE [Concomitant]
     Active Substance: CYCLOPHOSPHAMIDE
     Indication: Cardiac amyloidosis
     Dosage: 300 MILLIGRAM/SQ. METER, CYCLICAL  (ADMINISTERED ON DAYS 8 AND 15)
     Route: 048
  3. BORTEZOMIB [Concomitant]
     Active Substance: BORTEZOMIB
     Indication: Cardiac amyloidosis
     Dosage: 1.3 MILLIGRAM/SQ. METER, CYCLICAL (ADMINISTERED ON DAYS 15 AND 22)
     Route: 058

REACTIONS (2)
  - Cardiac failure [Fatal]
  - Off label use [Unknown]
